FAERS Safety Report 6807885-X (Version None)
Quarter: 2010Q2

REPORT INFORMATION
  Report Type: 
  Country: None (occurrence: None)
  Receive Date: 20100629
  Receipt Date: 20090318
  Transmission Date: 20101027
  Serious: No
  Sender: FDA-Public Use
  Company Number: US-PFIZER INC-2008152406

PATIENT
  Sex: Male
  Weight: 81.6 kg

DRUGS (2)
  1. VIAGRA [Suspect]
  2. CARDIOVASCULAR SYSTEM DRUGS [Concomitant]
     Dosage: UNK

REACTIONS (3)
  - DRUG INEFFECTIVE [None]
  - EAR DISORDER [None]
  - INCORRECT DOSE ADMINISTERED [None]
